FAERS Safety Report 16775386 (Version 2)
Quarter: 2019Q3

REPORT INFORMATION
  Report Type: Report from Study
  Country: MX (occurrence: MX)
  Receive Date: 20190905
  Receipt Date: 20190909
  Transmission Date: 20191005
  Serious: Yes (Death)
  Sender: FDA-Public Use
  Company Number: PHHY2019MX206079

PATIENT
  Sex: Male
  Weight: 74 kg

DRUGS (2)
  1. EXFORGE [Suspect]
     Active Substance: AMLODIPINE BESYLATE\VALSARTAN
     Indication: BLOOD PRESSURE ABNORMAL
     Dosage: 1 DF (AMLODIPINE 5 MG, VALSARTAN 160 MG), QD
     Route: 048
     Dates: end: 20190805
  2. INSULIN HUMAN [Concomitant]
     Active Substance: INSULIN HUMAN
     Indication: DIABETES MELLITUS
     Dosage: (30 UNITS IN THE MORNING AND 15 UNITS AT NIGHT)
     Route: 058
     Dates: end: 20190805

REACTIONS (3)
  - Fluid retention [Fatal]
  - Dyspnoea [Fatal]
  - Pneumonia [Fatal]
